FAERS Safety Report 8448634-1 (Version None)
Quarter: 2012Q2

REPORT INFORMATION
  Report Type: 
  Country: None (occurrence: None)
  Receive Date: 20120619
  Receipt Date: 20120607
  Transmission Date: 20120825
  Serious: Yes (Other)
  Sender: FDA-Public Use
  Company Number: MX-BRISTOL-MYERS SQUIBB COMPANY-16676934

PATIENT
  Age: 43 Year
  Sex: Male
  Weight: 74 kg

DRUGS (2)
  1. METFORMIN HCL [Concomitant]
     Indication: TYPE 2 DIABETES MELLITUS
     Dosage: 1 DF= 1 TAB
     Route: 048
     Dates: start: 20080101
  2. APROVEL TABS [Suspect]
     Indication: HYPERTENSION
     Dosage: 1DF=1 TAB APROVEL TABS150MG:2009-JUN11. REDUCED 1/2 TABS AUG10-JUN11 FROMJUN11 APROVEL TABS 300MG
     Route: 048
     Dates: start: 20090101

REACTIONS (3)
  - FATIGUE [None]
  - MEDICATION ERROR [None]
  - BLOOD PRESSURE INCREASED [None]
